FAERS Safety Report 5571416-5 (Version None)
Quarter: 2007Q4

REPORT INFORMATION
  Report Type: 
  Country: None (occurrence: None)
  Receive Date: 20071221
  Receipt Date: 20071026
  Transmission Date: 20080405
  Serious: No
  Sender: FDA-Public Use
  Company Number: A0690093A

PATIENT
  Age: 58 Year
  Sex: Female

DRUGS (10)
  1. FLUTICASONE PROPIONATE [Suspect]
     Dosage: 1SPR PER DAY
     Route: 045
     Dates: start: 20070901
  2. COUMADIN [Concomitant]
  3. PLAQUENIL [Concomitant]
  4. METHOTREXATE [Concomitant]
  5. BENICAR [Concomitant]
  6. FISH OIL [Concomitant]
  7. ONE A DAY VITAMIN [Concomitant]
  8. CRANBERRY [Concomitant]
  9. TUMS [Concomitant]
  10. TYLENOL [Concomitant]

REACTIONS (1)
  - DRUG INEFFECTIVE [None]
